FAERS Safety Report 7276687-5 (Version None)
Quarter: 2011Q1

REPORT INFORMATION
  Report Type: 
  Country: None (occurrence: None)
  Receive Date: 20110204
  Receipt Date: 20110203
  Transmission Date: 20110831
  Serious: Yes (Hospitalization)
  Sender: FDA-Public Use
  Company Number: GB-MERCK-1101GBR00081

PATIENT
  Age: 83 Year
  Sex: Female

DRUGS (3)
  1. ASPIRIN [Suspect]
     Route: 065
  2. CLOPIDOGREL BISULFATE [Suspect]
     Route: 065
  3. FOSAMAX [Suspect]
     Route: 048

REACTIONS (3)
  - HAEMATEMESIS [None]
  - RECTAL HAEMORRHAGE [None]
  - OESOPHAGITIS [None]
